FAERS Safety Report 7935172-5 (Version None)
Quarter: 2011Q4

REPORT INFORMATION
  Report Type: 
  Country: None (occurrence: None)
  Receive Date: 20111122
  Receipt Date: 20111109
  Transmission Date: 20120403
  Serious: No
  Sender: FDA-Public Use
  Company Number: US-B.I. PHARMACEUTICALS,INC./RIDGEFIELD-2011-BP-24678BP

PATIENT
  Age: 69 Year
  Sex: Male
  Weight: 254 kg

DRUGS (1)
  1. PRADAXA [Suspect]
     Indication: ARRHYTHMIA
     Dosage: 300 MG
     Dates: start: 20110922, end: 20110926

REACTIONS (5)
  - DRUG LEVEL DECREASED [None]
  - FLATULENCE [None]
  - ABDOMINAL DISTENSION [None]
  - NAUSEA [None]
  - ABDOMINAL DISCOMFORT [None]
